FAERS Safety Report 5819408-2 (Version None)
Quarter: 2008Q3

REPORT INFORMATION
  Report Type: 
  Country: None (occurrence: None)
  Receive Date: 20080718
  Receipt Date: 20080711
  Transmission Date: 20090109
  Serious: Yes (Hospitalization)
  Sender: FDA-Public Use
  Company Number: 2008018110

PATIENT
  Age: 73 Year
  Sex: Female
  Weight: 57.9 kg

DRUGS (11)
  1. CETIRIZINE HCL [Suspect]
     Dosage: (10 MG,1 IN 1D), ORAL
     Route: 048
     Dates: end: 20080620
  2. CALCICHEW-D3 (CALCIUM CARBONATE, COLECALCIFEROL) [Concomitant]
  3. CODEINE SUL TAB [Concomitant]
  4. CYCLIZINE (CYCLIZINE) [Concomitant]
  5. MAGNESIUM HYDROXIDE TAB [Concomitant]
  6. MOVICOL (MACROGOL, POTASSIUM CHLORIDE, SODIUM BICARBONATE, SODIUM CHLO [Concomitant]
  7. NICOTINE [Concomitant]
  8. ACETAMINOPHEN [Concomitant]
  9. SENNA (SENNA) [Concomitant]
  10. SIMVASTATIN [Concomitant]
  11. TROSPIUM CHLORIDE (TROSPIUM CHLORIDE) [Concomitant]

REACTIONS (1)
  - PLATELET COUNT INCREASED [None]
